FAERS Safety Report 4973358-2 (Version None)
Quarter: 2006Q2

REPORT INFORMATION
  Report Type: 
  Country: None (occurrence: None)
  Receive Date: 20060414
  Receipt Date: 20060203
  Transmission Date: 20061013
  Serious: Yes (Death, Hospitalization)
  Sender: FDA-Public Use
  Company Number: JP-BOEHRINGER INGELHEIM PHARMACEUTICALS, INC.-2006-BP-01364NB

PATIENT
  Sex: Male
  Weight: 36 kg

DRUGS (6)
  1. MICARDIS [Suspect]
     Indication: HYPERTENSION
     Route: 048
     Dates: start: 20030901, end: 20060202
  2. ASPIRIN [Concomitant]
     Indication: CEREBRAL INFARCTION
     Route: 048
     Dates: start: 20020601
  3. PROCYLIN [Concomitant]
     Route: 048
     Dates: start: 20020601
  4. TAKEPRON [Concomitant]
     Indication: GASTRIC ULCER
     Route: 048
     Dates: start: 20020601
  5. NORVASC [Concomitant]
     Indication: HYPERTENSION
     Route: 048
     Dates: start: 20020601
  6. PURSENNID (SENNOSIDE) [Concomitant]
     Indication: CONSTIPATION
     Route: 048
     Dates: start: 20020601

REACTIONS (2)
  - HYPOGLYCAEMIA [None]
  - RENAL FAILURE CHRONIC [None]
